FAERS Safety Report 11253401 (Version 3)
Quarter: 2019Q1

REPORT INFORMATION
  Report Type: Spontaneous
  Country: CA (occurrence: CA)
  Receive Date: 20150709
  Receipt Date: 20190322
  Transmission Date: 20190417
  Serious: Yes (Other)
  Sender: FDA-Public Use
  Company Number: CA-ROCHE-1605946

PATIENT
  Age: 39 Year
  Sex: Female

DRUGS (11)
  1. VENTOLIN [Concomitant]
     Active Substance: ALBUTEROL SULFATE
     Dosage: ONCE EVERY 2 TO 3
     Route: 065
  2. KETOTIFEN [Concomitant]
     Active Substance: KETOTIFEN
  3. ADVAIR HFA [Concomitant]
     Active Substance: FLUTICASONE PROPIONATE\SALMETEROL XINAFOATE
     Indication: PRODUCT USED FOR UNKNOWN INDICATION
     Route: 065
  4. FLOVENT [Concomitant]
     Active Substance: FLUTICASONE PROPIONATE
     Indication: ASTHMA
     Route: 065
  5. XOLAIR [Suspect]
     Active Substance: OMALIZUMAB
     Route: 058
  6. DOXEPIN [Concomitant]
     Active Substance: DOXEPIN
     Route: 065
  7. NEXIUM [Concomitant]
     Active Substance: ESOMEPRAZOLE MAGNESIUM
  8. ZADITEN [Concomitant]
     Active Substance: KETOTIFEN FUMARATE
     Route: 065
  9. XOLAIR [Suspect]
     Active Substance: OMALIZUMAB
     Indication: ASTHMA
     Route: 058
     Dates: start: 20110321
  10. PREDNISONE. [Concomitant]
     Active Substance: PREDNISONE
     Indication: ASTHMA
  11. REACTINE (CANADA) [Concomitant]
     Active Substance: CETIRIZINE HYDROCHLORIDE

REACTIONS (17)
  - Respiratory tract infection [Unknown]
  - Influenza [Unknown]
  - Tremor [Unknown]
  - Ill-defined disorder [Unknown]
  - Connective tissue disorder [Unknown]
  - Facial pain [Unknown]
  - Anxiety [Unknown]
  - Urticaria [Unknown]
  - Sinusitis [Unknown]
  - Nasal congestion [Unknown]
  - Heart rate increased [Unknown]
  - Asthma [Unknown]
  - Rhinorrhoea [Unknown]
  - Ear pain [Unknown]
  - Cough [Unknown]
  - Dyspnoea [Recovered/Resolved]
  - Fatigue [Unknown]

NARRATIVE: CASE EVENT DATE: 201412
